FAERS Safety Report 9179303 (Version 2)
Quarter: 2014Q1

REPORT INFORMATION
  Report Type: Spontaneous
  Country: US (occurrence: US)
  Receive Date: 20130321
  Receipt Date: 20140123
  Transmission Date: 20141002
  Serious: Yes (Hospitalization, Other)
  Sender: FDA-Public Use
  Company Number: US-BAYER-2013-034460

PATIENT
  Age: 32 Year
  Sex: Female

DRUGS (6)
  1. YASMIN [Suspect]
  2. YAZ [Suspect]
  3. OCELLA [Suspect]
  4. HYDROCODONE W/ACETAMINOPHEN [Concomitant]
     Dosage: 500 MG, UNK
  5. CEFADROXIL [Concomitant]
     Dosage: 500 MG, UNK
  6. PERCOCET [Concomitant]

REACTIONS (4)
  - Cholecystectomy [None]
  - Cholecystitis acute [None]
  - Emotional distress [None]
  - Injury [None]
